FAERS Safety Report 19648088 (Version 6)
Quarter: 2021Q4

REPORT INFORMATION
  Report Type: Spontaneous
  Country: JP (occurrence: JP)
  Receive Date: 20210803
  Receipt Date: 20211107
  Transmission Date: 20220303
  Serious: Yes (Hospitalization, Other)
  Sender: FDA-Public Use
  Company Number: JP-DSJP-DSJ-2021-123558

PATIENT
  Age: 8 Decade
  Sex: Female

DRUGS (8)
  1. DENOSUMAB [Suspect]
     Active Substance: DENOSUMAB
     Indication: Metastases to bone
     Dosage: 120 MILLIGRAM
     Route: 058
     Dates: start: 20130405, end: 20180616
  2. DENOSUMAB [Suspect]
     Active Substance: DENOSUMAB
     Dosage: 120 MILLIGRAM
     Route: 058
     Dates: start: 20181006, end: 20191214
  3. DENOSUMAB [Suspect]
     Active Substance: DENOSUMAB
     Dosage: 120 MILLIGRAM
     Route: 058
     Dates: start: 20200407, end: 20210122
  4. DENOSUMAB [Suspect]
     Active Substance: DENOSUMAB
     Dosage: 120 MILLIGRAM
     Route: 058
     Dates: start: 20210323
  5. FASLODEX [Concomitant]
     Active Substance: FULVESTRANT
     Indication: Metastases to bone
     Dosage: 500 MG, QD
     Route: 030
     Dates: start: 20181102
  6. CALCIUM CARBONATE\CHOLECALCIFEROL\MAGNESIUM CARBONATE [Concomitant]
     Active Substance: CALCIUM CARBONATE\CHOLECALCIFEROL\MAGNESIUM CARBONATE
     Indication: Metastases to bone
     Dosage: 2 DF, QD
     Route: 048
     Dates: start: 20130405
  7. EXEMESTANE [Concomitant]
     Active Substance: EXEMESTANE
     Indication: Metastases to bone
     Dosage: 25 MG, QD
     Route: 048
     Dates: start: 20171118, end: 20181102
  8. URSO [Concomitant]
     Active Substance: URSODIOL
     Indication: Metastases to bone
     Dosage: 100 MG, TID
     Route: 048
     Dates: start: 20191116

REACTIONS (4)
  - Femur fracture [Recovering/Resolving]
  - Femur fracture [Recovering/Resolving]
  - Osteonecrosis of jaw [Recovering/Resolving]
  - Osteonecrosis of jaw [Not Recovered/Not Resolved]

NARRATIVE: CASE EVENT DATE: 20180619
